FAERS Safety Report 9252179 (Version 1)
Quarter: 2013Q1

REPORT INFORMATION
  Report Type: Spontaneous
  Country: US (occurrence: None)
  Receive Date: 20130305
  Receipt Date: 20130305
  Transmission Date: 20140127
  Serious: Yes (Hospitalization, Other)
  Sender: FDA-Public Use
  Company Number: 163-21880-12083391

PATIENT
  Age: 60 Year
  Sex: Male

DRUGS (2)
  1. REVLIMID [Suspect]
     Indication: PLASMA CELL MYELOMA
     Dosage: 21 IN 28 D?07/01/2006 - TEMPORARILY INTERRUPTED
     Route: 048
     Dates: start: 20060701
  2. WARFARIN(WARFARIN)(UNKNOWN) [Concomitant]

REACTIONS (2)
  - Pulmonary embolism [None]
  - Cerebral haemorrhage [None]
